FAERS Safety Report 18475024 (Version 2)
Quarter: 2020Q4

REPORT INFORMATION
  Report Type: Spontaneous
  Country: US (occurrence: US)
  Receive Date: 20201106
  Receipt Date: 20201201
  Transmission Date: 20210114
  Serious: Yes (Hospitalization)
  Sender: FDA-Public Use
  Company Number: US-CELGENEUS-USA-20201100062

PATIENT
  Age: 64 Year
  Sex: Male
  Weight: 94.2 kg

DRUGS (64)
  1. ABRAXANE [Suspect]
     Active Substance: PACLITAXEL
     Route: 042
     Dates: start: 20191113, end: 20191113
  2. MED19447 [Concomitant]
     Route: 042
     Dates: start: 20200401, end: 20200401
  3. MED19447 [Concomitant]
     Route: 042
     Dates: start: 20200916, end: 20200916
  4. GEMCITABINE. [Concomitant]
     Active Substance: GEMCITABINE
     Route: 042
     Dates: start: 20190925, end: 20190925
  5. GEMCITABINE. [Concomitant]
     Active Substance: GEMCITABINE
     Route: 042
     Dates: start: 20191016, end: 20191016
  6. GEMCITABINE. [Concomitant]
     Active Substance: GEMCITABINE
     Route: 042
     Dates: start: 20200916, end: 20200916
  7. METFORMIN [Concomitant]
     Active Substance: METFORMIN HYDROCHLORIDE
     Indication: DIABETES MELLITUS
     Dosage: 2 DOSAGE FORMS
     Route: 048
     Dates: start: 20200310
  8. MED19447 [Concomitant]
     Route: 042
     Dates: start: 20191113, end: 20191113
  9. MED19447 [Concomitant]
     Route: 042
     Dates: start: 20201014, end: 20201014
  10. DURVALUMAB. [Concomitant]
     Active Substance: DURVALUMAB
     Route: 042
     Dates: start: 20191016, end: 20191016
  11. DURVALUMAB. [Concomitant]
     Active Substance: DURVALUMAB
     Route: 042
     Dates: start: 20191113, end: 20191113
  12. DURVALUMAB. [Concomitant]
     Active Substance: DURVALUMAB
     Route: 042
     Dates: start: 20201014, end: 20201014
  13. DURVALUMAB. [Concomitant]
     Active Substance: DURVALUMAB
     Route: 042
     Dates: start: 2020
  14. GEMCITABINE. [Concomitant]
     Active Substance: GEMCITABINE
     Indication: PANCREATIC CARCINOMA METASTATIC
     Route: 042
     Dates: start: 20190918, end: 20190918
  15. ASPIRIN. [Concomitant]
     Active Substance: ASPIRIN
     Indication: GENERAL PHYSICAL HEALTH DETERIORATION
     Dosage: 81 MILLIGRAM
     Route: 048
     Dates: start: 201601
  16. ABRAXANE [Suspect]
     Active Substance: PACLITAXEL
     Route: 042
     Dates: start: 20191016, end: 20191016
  17. MED19447 [Concomitant]
     Route: 042
     Dates: start: 20191211, end: 20191211
  18. MED19447 [Concomitant]
     Route: 042
     Dates: start: 20200429, end: 20200429
  19. MED19447 [Concomitant]
     Route: 042
     Dates: start: 20200722, end: 20200722
  20. DURVALUMAB. [Concomitant]
     Active Substance: DURVALUMAB
     Indication: PANCREATIC CARCINOMA METASTATIC
     Route: 042
     Dates: start: 20190918, end: 20190918
  21. GEMCITABINE. [Concomitant]
     Active Substance: GEMCITABINE
     Route: 042
     Dates: start: 20191023, end: 20191023
  22. GEMCITABINE. [Concomitant]
     Active Substance: GEMCITABINE
     Route: 042
     Dates: start: 20191113, end: 20191130
  23. 9 OMEGA 3 FATTY ACID [Concomitant]
     Indication: SUPPLEMENTATION THERAPY
     Dosage: 1000 MILLIGRAM
     Route: 065
     Dates: start: 2013
  24. LANTUS SOLOSTAR [Concomitant]
     Active Substance: INSULIN GLARGINE
     Indication: DIABETES MELLITUS
     Dosage: .2 MILLILITER
     Route: 058
     Dates: start: 20190918
  25. LISINOPRIL. [Concomitant]
     Active Substance: LISINOPRIL
     Indication: DIABETES MELLITUS
     Dosage: 5 MILLIGRAM
     Route: 048
     Dates: start: 20200923
  26. MED19447 [Concomitant]
     Route: 042
     Dates: start: 20200304, end: 20200304
  27. DURVALUMAB. [Concomitant]
     Active Substance: DURVALUMAB
     Route: 042
     Dates: start: 20200205, end: 20200205
  28. DURVALUMAB. [Concomitant]
     Active Substance: DURVALUMAB
     Route: 042
     Dates: start: 20200527, end: 20200527
  29. DURVALUMAB. [Concomitant]
     Active Substance: DURVALUMAB
     Route: 042
     Dates: start: 20200624, end: 20200624
  30. PHENYLEPHRINE HCL [Concomitant]
     Active Substance: PHENYLEPHRINE HYDROCHLORIDE
     Indication: NASAL CONGESTION
     Dosage: 1.0DF AS REQUIRED
     Route: 048
     Dates: start: 20200221
  31. MIRALAX [Concomitant]
     Active Substance: POLYETHYLENE GLYCOL 3350
     Indication: DIABETES MELLITUS
     Dosage: 17 GRAM
     Route: 048
     Dates: start: 20200730
  32. EX-LAX REGULAR STRENGTH STIMULANT LAXATIVE [Concomitant]
     Active Substance: SENNOSIDES
     Indication: DIABETES MELLITUS
     Route: 048
     Dates: start: 20200730
  33. ABRAXANE [Suspect]
     Active Substance: PACLITAXEL
     Indication: PANCREATIC CARCINOMA METASTATIC
     Route: 042
     Dates: start: 20190918, end: 20190918
  34. ABRAXANE [Suspect]
     Active Substance: PACLITAXEL
     Route: 042
     Dates: start: 20191023, end: 20191023
  35. THE ORIGINAL NATURAL HERB COUGH DROPS [Concomitant]
     Active Substance: MENTHOL
     Indication: DIABETES MELLITUS
     Route: 048
     Dates: start: 20201017
  36. MED19447 [Concomitant]
     Indication: PANCREATIC CARCINOMA METASTATIC
     Route: 042
     Dates: start: 20190918, end: 20190918
  37. MED19447 [Concomitant]
     Route: 042
     Dates: start: 2020
  38. DURVALUMAB. [Concomitant]
     Active Substance: DURVALUMAB
     Route: 042
     Dates: start: 20200401, end: 20200401
  39. DURVALUMAB. [Concomitant]
     Active Substance: DURVALUMAB
     Route: 042
     Dates: start: 20200429, end: 20200429
  40. GEMCITABINE. [Concomitant]
     Active Substance: GEMCITABINE
     Route: 042
     Dates: start: 20200722, end: 20200722
  41. GEMCITABINE. [Concomitant]
     Active Substance: GEMCITABINE
     Route: 042
     Dates: start: 20200902, end: 20200902
  42. ALLOPURINOL. [Concomitant]
     Active Substance: ALLOPURINOL
     Indication: HYPERURICAEMIA
     Dosage: 600 MILLIGRAM
     Route: 048
  43. HYDROCODONE BITARTRATE AND ACETAMINOPHEN [Concomitant]
     Active Substance: ACETAMINOPHEN\HYDROCODONE BITARTRATE
     Indication: ABDOMINAL PAIN
     Dosage: 1.0DF AS REQUIRED
     Route: 048
     Dates: start: 20190822
  44. GLIPIZIDE. [Concomitant]
     Active Substance: GLIPIZIDE
     Indication: DIABETES MELLITUS
     Dosage: .1429 DOSAGE FORMS
     Route: 048
     Dates: start: 20200310
  45. ABRAXANE [Suspect]
     Active Substance: PACLITAXEL
     Route: 042
     Dates: start: 20190925, end: 20190925
  46. ABRAXANE [Suspect]
     Active Substance: PACLITAXEL
     Route: 042
     Dates: start: 20191030, end: 20191030
  47. MED19447 [Concomitant]
     Route: 042
     Dates: start: 20200205, end: 20200205
  48. MED19447 [Concomitant]
     Route: 042
     Dates: start: 20200527, end: 20200527
  49. DURVALUMAB. [Concomitant]
     Active Substance: DURVALUMAB
     Route: 042
     Dates: start: 20200304, end: 20200304
  50. DURVALUMAB. [Concomitant]
     Active Substance: DURVALUMAB
     Route: 042
     Dates: start: 20200722, end: 20200722
  51. DURVALUMAB. [Concomitant]
     Active Substance: DURVALUMAB
     Route: 042
     Dates: start: 20200819, end: 20200819
  52. DURVALUMAB. [Concomitant]
     Active Substance: DURVALUMAB
     Route: 042
     Dates: start: 20200916, end: 20200916
  53. GEMCITABINE. [Concomitant]
     Active Substance: GEMCITABINE
     Route: 042
     Dates: start: 20191030, end: 20191030
  54. GEMCITABINE. [Concomitant]
     Active Substance: GEMCITABINE
     Route: 042
     Dates: start: 20200930, end: 20200930
  55. ALLOPURINOL. [Concomitant]
     Active Substance: ALLOPURINOL
     Indication: GOUT
     Dosage: 600 MILLIGRAM
     Route: 048
  56. ATORVASTATIN [Concomitant]
     Active Substance: ATORVASTATIN
     Indication: HYPERLIPIDAEMIA
     Dosage: 40 MILLIGRAM
     Route: 048
     Dates: start: 201601
  57. OMEPRAZOLE. [Concomitant]
     Active Substance: OMEPRAZOLE
     Indication: GASTROOESOPHAGEAL REFLUX DISEASE
     Dosage: 20 MILLIGRAM
     Route: 065
     Dates: start: 2013
  58. ABRAXANE [Suspect]
     Active Substance: PACLITAXEL
     Route: 042
     Dates: start: 20200722, end: 20200722
  59. MULTIVITAMIN [Concomitant]
     Active Substance: VITAMINS
     Indication: SUPPLEMENTATION THERAPY
     Dosage: 1 DOSAGE FORMS
     Route: 048
     Dates: start: 2013
  60. ABRAXANE [Suspect]
     Active Substance: PACLITAXEL
     Route: 042
     Dates: start: 20200826, end: 20200826
  61. MED19447 [Concomitant]
     Route: 042
     Dates: start: 20200108, end: 20200108
  62. MED19447 [Concomitant]
     Route: 042
     Dates: start: 20200624, end: 20200624
  63. MED19447 [Concomitant]
     Route: 042
     Dates: start: 20200819, end: 20200819
  64. DURVALUMAB. [Concomitant]
     Active Substance: DURVALUMAB
     Route: 042
     Dates: start: 20191211, end: 20191211

REACTIONS (1)
  - COVID-19 [Recovered/Resolved]

NARRATIVE: CASE EVENT DATE: 20201016
